FAERS Safety Report 21139317 (Version 1)
Quarter: 2022Q3

REPORT INFORMATION
  Report Type: Report from Study
  Country: JP (occurrence: JP)
  Receive Date: 20220727
  Receipt Date: 20220727
  Transmission Date: 20221026
  Serious: Yes (Death, Hospitalization)
  Sender: FDA-Public Use
  Company Number: JP-DSJP-DSJ-2022-107999

PATIENT
  Age: 83 Year
  Sex: Female
  Weight: 58 kg

DRUGS (7)
  1. PRASUGREL HYDROCHLORIDE [Suspect]
     Active Substance: PRASUGREL HYDROCHLORIDE
     Indication: Acute myocardial infarction
     Dosage: 20 MG, QD
     Route: 048
     Dates: start: 20170601, end: 20170601
  2. ASPIRIN [Suspect]
     Active Substance: ASPIRIN
     Dosage: 0.1 G, QD
     Route: 048
     Dates: start: 20170602, end: 20170718
  3. ASPIRIN\DIHYDROXYALUMINUM AMINOACETATE ANHYDROUS\MAGNESIUM CARBONATE [Suspect]
     Active Substance: ASPIRIN\DIHYDROXYALUMINUM AMINOACETATE ANHYDROUS\MAGNESIUM CARBONATE
     Dosage: 330 MG, QD
     Route: 048
     Dates: start: 20170601, end: 20170601
  4. WARFARIN POTASSIUM [Suspect]
     Active Substance: WARFARIN POTASSIUM
     Dosage: 1 MG, QD
     Route: 048
     Dates: start: 20170708, end: 20170709
  5. WARFARIN POTASSIUM [Suspect]
     Active Substance: WARFARIN POTASSIUM
     Dosage: 1.5 MG, QD
     Route: 048
     Dates: start: 20170710, end: 20170718
  6. CLOPIDOGREL BISULFATE [Suspect]
     Active Substance: CLOPIDOGREL BISULFATE
     Dosage: 75 MG, QD
     Route: 048
     Dates: start: 20170609, end: 20170718
  7. HEPARIN [Suspect]
     Active Substance: HEPARIN SODIUM
     Dosage: 10000 IU, BID
     Route: 042
     Dates: start: 20170601, end: 20170601

REACTIONS (1)
  - Ventricle rupture [Fatal]

NARRATIVE: CASE EVENT DATE: 20170602
